FAERS Safety Report 9390707 (Version 4)
Quarter: 2013Q4

REPORT INFORMATION
  Report Type: Report from Study
  Country: IT (occurrence: IT)
  Receive Date: 20130709
  Receipt Date: 20131003
  Transmission Date: 20140711
  Serious: Yes (Death)
  Sender: FDA-Public Use
  Company Number: IT-ALEXION PHARMACEUTICALS INC.-A201301545

PATIENT
  Age: 43 Year
  Sex: Male
  Weight: 65 kg

DRUGS (4)
  1. SOLIRIS [Suspect]
     Indication: HAEMOLYTIC URAEMIC SYNDROME
     Dosage: 900 MG, QW
     Route: 042
     Dates: start: 20130601, end: 20130607
  2. ACETYLCYSTEINE [Concomitant]
     Dosage: UNK
     Dates: start: 20130520
  3. URBASON [Concomitant]
     Indication: GRAFT VERSUS HOST DISEASE
     Dosage: 140 MG, QD
     Route: 042
     Dates: start: 20130514, end: 20130521
  4. REMICADE [Concomitant]
     Indication: GRAFT VERSUS HOST DISEASE
     Dosage: 700 MG, UNK
     Route: 042
     Dates: start: 20130606, end: 20130606

REACTIONS (3)
  - Multi-organ failure [Fatal]
  - Thrombotic microangiopathy [Fatal]
  - Treatment failure [Fatal]
